FAERS Safety Report 4409305-1 (Version None)
Quarter: 2004Q3

REPORT INFORMATION
  Report Type: 
  Country: None (occurrence: None)
  Receive Date: 20040723
  Receipt Date: 20040709
  Transmission Date: 20050211
  Serious: Yes (Death)
  Sender: FDA-Public Use
  Company Number: 2004S1002020

PATIENT
  Age: 85 Year
  Sex: Female

DRUGS (10)
  1. CLOZAPINE [Suspect]
     Dosage: 75 MG/DAY, ORAL
     Route: 048
  2. LORAZEPAM [Concomitant]
  3. GABAPENTIN [Concomitant]
  4. CARBIDOPA AND LEVODOPA [Concomitant]
  5. LISINOPRIL [Concomitant]
  6. ATENOLOL [Concomitant]
  7. TOLCAPONE [Concomitant]
  8. AMITRIPTYLINE HCL [Concomitant]
  9. LANSOPRAZOLE [Concomitant]
  10. HYDROCODONE/ACETAMINOPHEN [Concomitant]

REACTIONS (1)
  - DEATH [None]
